FAERS Safety Report 6298407-3 (Version None)
Quarter: 2009Q3

REPORT INFORMATION
  Report Type: 
  Country: None (occurrence: None)
  Receive Date: 20090805
  Receipt Date: 20090731
  Transmission Date: 20100115
  Serious: Yes (Hospitalization)
  Sender: FDA-Public Use
  Company Number: US-ROXANE LABORATORIES, INC.-2009-RO-00768RO

PATIENT
  Age: 58 Year
  Sex: Male

DRUGS (5)
  1. LITHIUM CARBONATE [Suspect]
     Indication: BIPOLAR DISORDER
     Dosage: 1200 MG
  2. LEVOTHYROXINE SODIUM [Suspect]
  3. GLYBURIDE [Suspect]
     Dosage: 5 MG
  4. ATROPINE [Concomitant]
     Indication: SINUS BRADYCARDIA
  5. VALPROIC ACID [Concomitant]
     Indication: AFFECTIVE DISORDER

REACTIONS (5)
  - ABNORMAL BEHAVIOUR [None]
  - NODAL RHYTHM [None]
  - RENAL FAILURE ACUTE [None]
  - SINUS BRADYCARDIA [None]
  - THERAPEUTIC AGENT TOXICITY [None]
